FAERS Safety Report 10416398 (Version 3)
Quarter: 2015Q1

REPORT INFORMATION
  Report Type: Spontaneous
  Country: US (occurrence: None)
  Receive Date: 20140826
  Receipt Date: 20150225
  Transmission Date: 20150720
  Serious: Yes (Life-Threatening, Hospitalization)
  Sender: FDA-Public Use
  Company Number: 2493652

PATIENT
  Age: 71 Year
  Sex: Male
  Weight: 83.8 kg

DRUGS (22)
  1. CERUBIDINE [Suspect]
     Active Substance: DAUNORUBICIN HYDROCHLORIDE
     Indication: ACUTE MYELOID LEUKAEMIA
     Dosage: 122 MG MILLIGRAM(S), 1 DAY, INTRAVENOUS BOLUS?
     Route: 040
     Dates: start: 20140515, end: 20140609
  2. AZITHROMYCIN [Concomitant]
     Active Substance: AZITHROMYCIN ANHYDROUS
  3. ALENDRONATE SODIUM. [Concomitant]
     Active Substance: ALENDRONATE SODIUM
  4. ATENOLOL. [Concomitant]
     Active Substance: ATENOLOL
  5. CALCIUM CARBONATE W/COLECALCIFEROL [Concomitant]
     Active Substance: CALCIUM CARBONATE\CHOLECALCIFEROL
  6. MEROPENEM. [Concomitant]
     Active Substance: MEROPENEM
  7. VANCOMYCIN [Concomitant]
     Active Substance: VANCOMYCIN
  8. LOPERAMIDE [Concomitant]
     Active Substance: LOPERAMIDE
  9. PANTOPRAZOLE [Concomitant]
     Active Substance: PANTOPRAZOLE SODIUM
  10. PROCHLORPERAZINE. [Concomitant]
     Active Substance: PROCHLORPERAZINE
  11. CYTARABINE (MANUFACTURER UNKNOWN) (CYTARABINE (CYTARABINE) [Suspect]
     Active Substance: CYTARABINE
     Indication: ACUTE MYELOID LEUKAEMIA
     Dosage: 204 MG MILLIGRAM(S), UNKNOWN, INTRAVENOUS DRIP?
     Route: 041
     Dates: start: 20140515, end: 20140614
  12. ETHAMBUTOL [Concomitant]
     Active Substance: ETHAMBUTOL HYDROCHLORIDE
  13. ACICLOVIR [Concomitant]
     Active Substance: ACYCLOVIR
  14. TAMSULOSIN [Concomitant]
     Active Substance: TAMSULOSIN
  15. POSACONAZOLE [Concomitant]
     Active Substance: POSACONAZOLE
  16. K-DUR [Concomitant]
     Active Substance: POTASSIUM CHLORIDE
  17. INVESTIGATIONAL DRUG [Suspect]
     Active Substance: INVESTIGATIONAL PRODUCT
     Indication: ACUTE MYELOID LEUKAEMIA
     Dosage: 100 MG MILLIGRAM(S), 1 DAY, ORAL
     Route: 048
     Dates: start: 20140512, end: 20140624
  18. TOBRAMYCIN. [Concomitant]
     Active Substance: TOBRAMYCIN
  19. NYSTATIN. [Concomitant]
     Active Substance: NYSTATIN
  20. PREDNISONE. [Suspect]
     Active Substance: PREDNISONE
     Indication: SERONEGATIVE ARTHRITIS
     Dosage: 10 MG MILLIGRAM(S), 1 DAY, ORAL
     Route: 048
     Dates: end: 201401
  21. HYDRALAZINE [Concomitant]
     Active Substance: HYDRALAZINE HYDROCHLORIDE
  22. LORAZEPAM. [Concomitant]
     Active Substance: LORAZEPAM

REACTIONS (7)
  - Mycobacterium avium complex infection [None]
  - Hypotension [None]
  - Pneumocystis jirovecii pneumonia [None]
  - Pneumonia [None]
  - Neutropenia [None]
  - Unresponsive to stimuli [None]
  - Delirium [None]

NARRATIVE: CASE EVENT DATE: 20140706
